FAERS Safety Report 4369624-4 (Version None)
Quarter: 2004Q2

REPORT INFORMATION
  Report Type: 
  Country: None (occurrence: None)
  Receive Date: 20040527
  Receipt Date: 20040520
  Transmission Date: 20050107
  Serious: Yes (Life-Threatening, Hospitalization)
  Sender: FDA-Public Use
  Company Number: IBF20040003

PATIENT
  Age: 18 Month
  Sex: Male
  Weight: 10.5 kg

DRUGS (2)
  1. IBUPROFEN [Suspect]
     Indication: PYREXIA
     Dosage: 50 MG PRN PO
     Route: 048
     Dates: start: 20030101, end: 20030101
  2. ACETAMINOPHEN [Concomitant]

REACTIONS (16)
  - ACIDOSIS [None]
  - AZOTAEMIA [None]
  - BLOOD GLUCOSE INCREASED [None]
  - BLOOD PRESSURE SYSTOLIC DECREASED [None]
  - HYPERKALAEMIA [None]
  - ISCHAEMIA [None]
  - KIDNEY ENLARGEMENT [None]
  - PERITONEAL DIALYSIS [None]
  - RENAL CORTICAL NECROSIS [None]
  - RENAL FAILURE [None]
  - RENAL TUBULAR NECROSIS [None]
  - RESPIRATORY SYNCYTIAL VIRUS INFECTION [None]
  - SOMNOLENCE [None]
  - TACHYPNOEA [None]
  - ULTRASOUND KIDNEY ABNORMAL [None]
  - WHEEZING [None]
